FAERS Safety Report 5937279-0 (Version None)
Quarter: 2008Q4

REPORT INFORMATION
  Report Type: 
  Country: None (occurrence: None)
  Receive Date: 20081031
  Receipt Date: 20081027
  Transmission Date: 20090506
  Serious: Yes (Other)
  Sender: FDA-Public Use
  Company Number: JP-BAYER-200811827BYL

PATIENT
  Age: 69 Year
  Sex: Male

DRUGS (4)
  1. NEXAVAR [Suspect]
     Indication: RENAL CELL CARCINOMA STAGE III
     Route: 048
     Dates: start: 20080324, end: 20080618
  2. NEXAVAR [Suspect]
     Route: 048
     Dates: start: 20080619, end: 20080629
  3. NEXAVAR [Suspect]
     Route: 048
     Dates: start: 20080707, end: 20080721
  4. NEXAVAR [Suspect]
     Route: 048
     Dates: start: 20080722, end: 20080814

REACTIONS (5)
  - DIARRHOEA [None]
  - DRY SKIN [None]
  - HEPATIC FUNCTION ABNORMAL [None]
  - HYPERTENSION [None]
  - PALMAR-PLANTAR ERYTHRODYSAESTHESIA SYNDROME [None]
